FAERS Safety Report 9519730 (Version 1)
Quarter: 2013Q3

REPORT INFORMATION
  Report Type: Spontaneous
  Country: IT (occurrence: IT)
  Receive Date: 20130912
  Receipt Date: 20130912
  Transmission Date: 20140515
  Serious: Yes (Hospitalization)
  Sender: FDA-Public Use
  Company Number: IT-WATSON-2013-16170

PATIENT
  Age: 78 Year
  Sex: Female

DRUGS (1)
  1. DIAZEPAM (UNKNOWN) [Suspect]
     Indication: INTENTIONAL DRUG MISUSE
     Dosage: 60 ML, SINGLE
     Route: 048
     Dates: start: 20130806, end: 20130806

REACTIONS (3)
  - Toxicity to various agents [Unknown]
  - Intentional drug misuse [Unknown]
  - Drug abuse [Unknown]
